FAERS Safety Report 18440823 (Version 1)
Quarter: 2020Q4

REPORT INFORMATION
  Report Type: Other
  Country: US (occurrence: US)
  Receive Date: 20201029
  Receipt Date: 20201029
  Transmission Date: 20210114
  Serious: Yes (Death)
  Sender: FDA-Public Use
  Company Number: US-ROCHE-2703150

PATIENT
  Age: 59 Year
  Sex: Male

DRUGS (3)
  1. RITUXIMAB. [Suspect]
     Active Substance: RITUXIMAB
     Indication: PULMONARY ALVEOLAR HAEMORRHAGE
     Route: 065
  2. HYDRALAZINE [Concomitant]
     Active Substance: HYDRALAZINE HYDROCHLORIDE
  3. CYCLOPHOSPHAMIDE. [Suspect]
     Active Substance: CYCLOPHOSPHAMIDE
     Indication: PULMONARY ALVEOLAR HAEMORRHAGE
     Route: 065

REACTIONS (6)
  - Septic shock [Fatal]
  - Duodenal ulcer haemorrhage [Fatal]
  - Aspergillus infection [Fatal]
  - Multiple organ dysfunction syndrome [Fatal]
  - Drug resistance [Unknown]
  - Neutropenia [Fatal]
